FAERS Safety Report 9411096 (Version 1)
Quarter: 2013Q3

REPORT INFORMATION
  Report Type: Spontaneous
  Country: US (occurrence: US)
  Receive Date: 20130721
  Receipt Date: 20130721
  Transmission Date: 20140515
  Serious: No
  Sender: FDA-Public Use
  Company Number: US-009507513-1307USA006785

PATIENT
  Sex: Female

DRUGS (2)
  1. SAPHRIS [Suspect]
     Indication: BIPOLAR I DISORDER
     Route: 048
  2. LITHIUM [Concomitant]

REACTIONS (5)
  - Somnolence [Unknown]
  - Product quality issue [Unknown]
  - Mania [Unknown]
  - Personality disorder [Unknown]
  - Weight decreased [Unknown]
